FAERS Safety Report 15664897 (Version 2)
Quarter: 2019Q1

REPORT INFORMATION
  Report Type: Spontaneous
  Country: JP (occurrence: JP)
  Receive Date: 20181128
  Receipt Date: 20190201
  Transmission Date: 20190417
  Serious: Yes (Life-Threatening, Other)
  Sender: FDA-Public Use
  Company Number: JP-PFIZER INC-2018484178

PATIENT
  Age: 13 Year
  Sex: Female

DRUGS (3)
  1. ATROPINE SULFATE. [Suspect]
     Active Substance: ATROPINE SULFATE
     Dosage: 0.5 MG, UNK
     Route: 042
  2. ISOPROTERENOL [ISOPRENALINE] [Concomitant]
     Dosage: 0.01 UG/KG/MIN (CONTINUOUS INFUSION)
  3. PROPOFOL. [Concomitant]
     Active Substance: PROPOFOL
     Indication: SEDATIVE THERAPY
     Dosage: UNK

REACTIONS (1)
  - Ventricular tachycardia [Unknown]
